FAERS Safety Report 25528724 (Version 3)
Quarter: 2025Q3

REPORT INFORMATION
  Report Type: Spontaneous
  Country: EU (occurrence: EU)
  Receive Date: 20250708
  Receipt Date: 20250819
  Transmission Date: 20251021
  Serious: Yes (Hospitalization, Other)
  Sender: AUROBINDO
  Company Number: EU-FMX-ACL-03-25-LIT

PATIENT
  Age: 32 Year
  Sex: Female

DRUGS (8)
  1. MOXIFLOXACIN [Suspect]
     Active Substance: MOXIFLOXACIN
     Indication: Retinitis
     Route: 065
  2. MOXIFLOXACIN [Suspect]
     Active Substance: MOXIFLOXACIN
     Indication: HIV infection
  3. MOXIFLOXACIN [Suspect]
     Active Substance: MOXIFLOXACIN
     Indication: Photophobia
  4. MOXIFLOXACIN [Suspect]
     Active Substance: MOXIFLOXACIN
     Indication: Eye pain
  5. MOXIFLOXACIN [Suspect]
     Active Substance: MOXIFLOXACIN
     Indication: Lacrimation increased
  6. MOXIFLOXACIN [Suspect]
     Active Substance: MOXIFLOXACIN
     Indication: Headache
  7. ACYCLOVIR [Suspect]
     Active Substance: ACYCLOVIR
     Indication: Retinitis
     Route: 065
  8. ACYCLOVIR [Suspect]
     Active Substance: ACYCLOVIR
     Indication: HIV infection

REACTIONS (11)
  - Drug ineffective [Recovered/Resolved]
  - HIV infection [Unknown]
  - Blindness [Unknown]
  - Cytomegalovirus chorioretinitis [Unknown]
  - Retinal vasculitis [Unknown]
  - Uveitis [Unknown]
  - Iridocyclitis [Unknown]
  - Retinal detachment [Unknown]
  - Vision blurred [Unknown]
  - Product use in unapproved indication [Unknown]
  - Product prescribing issue [Unknown]

NARRATIVE: CASE EVENT DATE: 20240101
